FAERS Safety Report 5632223-8 (Version None)
Quarter: 2008Q1

REPORT INFORMATION
  Report Type: 
  Country: None (occurrence: None)
  Receive Date: 20080220
  Receipt Date: 20080211
  Transmission Date: 20080703
  Serious: Yes (Other)
  Sender: FDA-Public Use
  Company Number: FR-ABBOTT-08P-056-0437560-00

PATIENT
  Age: 48 Year
  Sex: Female

DRUGS (1)
  1. DEPAKOTE [Suspect]
     Indication: BIPOLAR DISORDER
     Route: 048
     Dates: start: 20060701, end: 20080108

REACTIONS (3)
  - HEADACHE [None]
  - INTRACRANIAL HYPOTENSION [None]
  - NERVOUS SYSTEM DISORDER [None]
